FAERS Safety Report 19425388 (Version 1)
Quarter: 2021Q2

REPORT INFORMATION
  Report Type: Spontaneous
  Country: JP (occurrence: JP)
  Receive Date: 20210616
  Receipt Date: 20210616
  Transmission Date: 20210717
  Serious: Yes (Other)
  Sender: FDA-Public Use
  Company Number: JP-TAKEDA-2021TUS032271

PATIENT

DRUGS (1)
  1. LIALDA [Suspect]
     Active Substance: MESALAMINE
     Indication: COLITIS ULCERATIVE
     Dosage: 1200 MILLIGRAM
     Route: 048

REACTIONS (9)
  - Pancreatitis acute [Unknown]
  - Parotid gland enlargement [Unknown]
  - Pericarditis [Unknown]
  - Organising pneumonia [Unknown]
  - Drug intolerance [Unknown]
  - Chest pain [Unknown]
  - Arthralgia [Unknown]
  - Cough [Unknown]
  - Hepatic function abnormal [Unknown]
